FAERS Safety Report 23227738 (Version 7)
Quarter: 2024Q1

REPORT INFORMATION
  Report Type: Spontaneous
  Country: DE (occurrence: DE)
  Receive Date: 20231125
  Receipt Date: 20240319
  Transmission Date: 20240409
  Serious: Yes (Hospitalization, Other)
  Sender: FDA-Public Use
  Company Number: DE-CELLTRION INC.-2023DE022590

PATIENT

DRUGS (16)
  1. BEVACIZUMAB [Suspect]
     Active Substance: BEVACIZUMAB
     Indication: Hepatocellular carcinoma
     Dosage: SYSTEMIC THERAPY WITH ATEZOLIZUMAB AND BEVACIZUMAB EVERY 3WEEKS; PATIENT RECEIVED THESE AGENTS FIVE
     Route: 065
  2. BEVACIZUMAB [Suspect]
     Active Substance: BEVACIZUMAB
     Indication: Hepatic cancer
     Dosage: 5 TIMES, EVERY 3 WEEK
     Route: 065
  3. BEVACIZUMAB [Suspect]
     Active Substance: BEVACIZUMAB
     Dosage: UNKNOWN
     Route: 065
  4. BEVACIZUMAB [Suspect]
     Active Substance: BEVACIZUMAB
     Dosage: EVERY 3 WEEKS
     Route: 065
  5. BEVACIZUMAB [Suspect]
     Active Substance: BEVACIZUMAB
     Dosage: UNK, EVERY 3 WEEKS
  6. ATEZOLIZUMAB [Suspect]
     Active Substance: ATEZOLIZUMAB
     Indication: Hepatocellular carcinoma
     Dosage: SYSTEMIC THERAPY WITH ATEZOLIZUMAB AND BEVACIZUMAB EVERY 3WEEKS; PATIENT RECEIVED THESE AGENTS FIVE
     Route: 065
  7. ATEZOLIZUMAB [Suspect]
     Active Substance: ATEZOLIZUMAB
     Indication: Hepatic cancer
     Dosage: 5 TIMES, EVERY 3 WEEK
     Route: 065
  8. ATEZOLIZUMAB [Suspect]
     Active Substance: ATEZOLIZUMAB
     Dosage: UNKNOWN
     Route: 065
  9. ATEZOLIZUMAB [Suspect]
     Active Substance: ATEZOLIZUMAB
     Dosage: EVERY THREE WEEKS
     Route: 065
  10. ATEZOLIZUMAB [Suspect]
     Active Substance: ATEZOLIZUMAB
     Dosage: UNK, EVERY 3 WEEKS
  11. CABOZANTINIB [Suspect]
     Active Substance: CABOZANTINIB
     Indication: Hepatocellular carcinoma
     Route: 065
  12. MITOMYCIN [Suspect]
     Active Substance: MITOMYCIN
     Indication: Hepatocellular carcinoma
     Route: 065
  13. ATEZOLIZUMAB [Concomitant]
     Active Substance: ATEZOLIZUMAB
     Indication: Hepatocellular carcinoma
     Dosage: EVERY 3 WEEKS
     Route: 065
  14. FRESH FROZEN PLASMA [Concomitant]
     Active Substance: HUMAN PLASMA
     Indication: Renal-limited thrombotic microangiopathy
     Route: 065
  15. SORAFENIB [Concomitant]
     Active Substance: SORAFENIB
     Indication: Hepatocellular carcinoma
     Route: 065
  16. PREDNISOLONE [Concomitant]
     Active Substance: PREDNISOLONE
     Indication: Renal-limited thrombotic microangiopathy
     Route: 065

REACTIONS (7)
  - Acute kidney injury [Not Recovered/Not Resolved]
  - Hepatocellular carcinoma [Recovering/Resolving]
  - Thrombotic microangiopathy [Recovered/Resolved]
  - Renal impairment [Not Recovered/Not Resolved]
  - Renal-limited thrombotic microangiopathy [Recovered/Resolved]
  - Drug ineffective [Unknown]
  - Off label use [Unknown]
